FAERS Safety Report 25994186 (Version 1)
Quarter: 2025Q4

REPORT INFORMATION
  Report Type: Spontaneous
  Country: US (occurrence: None)
  Receive Date: 20251104
  Receipt Date: 20251104
  Transmission Date: 20260118
  Serious: No
  Sender: UCB
  Company Number: US-UCBSA-2025049918

PATIENT
  Age: 48 Year

DRUGS (2)
  1. BIMZELX [Suspect]
     Active Substance: BIMEKIZUMAB-BKZX
     Indication: Psoriatic arthropathy
     Dosage: 160 MILLIGRAM, EV 4 WEEKS
  2. BIMZELX [Suspect]
     Active Substance: BIMEKIZUMAB-BKZX
     Indication: Psoriasis

REACTIONS (7)
  - Erythema [Unknown]
  - Injection site pain [Recovering/Resolving]
  - Skin haemorrhage [Recovering/Resolving]
  - Scratch [Recovering/Resolving]
  - Product dose omission issue [Unknown]
  - Off label use [Unknown]
  - Device issue [Unknown]
